FAERS Safety Report 4718678-1 (Version None)
Quarter: 2005Q3

REPORT INFORMATION
  Report Type: 
  Country: None (occurrence: None)
  Receive Date: 20050719
  Receipt Date: 20050121
  Transmission Date: 20060218
  Serious: Yes (Other)
  Sender: FDA-Public Use
  Company Number: 2004241842US

PATIENT
  Age: 65 Year
  Sex: Female
  Weight: 36.2878 kg

DRUGS (2)
  1. CELEBREX [Suspect]
     Indication: ARTHRITIS
     Dosage: 200 MG (1 IN 1 D), ORAL
     Route: 048
     Dates: end: 20040901
  2. ACETAMINOPHEN [Suspect]
     Indication: ILL-DEFINED DISORDER
     Dosage: ORAL
     Route: 048

REACTIONS (3)
  - FATIGUE [None]
  - MALAISE [None]
  - RENAL IMPAIRMENT [None]
